FAERS Safety Report 24908323 (Version 1)
Quarter: 2025Q1

REPORT INFORMATION
  Report Type: Spontaneous
  Country: DE (occurrence: DE)
  Receive Date: 20250131
  Receipt Date: 20250131
  Transmission Date: 20250409
  Serious: Yes (Other)
  Sender: TEVA
  Company Number: DE-EMB-M202306351-1

PATIENT
  Sex: Female
  Weight: 3.1 kg

DRUGS (4)
  1. CARBOPLATIN [Suspect]
     Active Substance: CARBOPLATIN
     Indication: Breast cancer female
     Dosage: 3 CYCLES: WEEK 29, WEEK 32 AND WEEK 35
     Route: 064
     Dates: start: 202005, end: 202007
  2. FOLIC ACID [Concomitant]
     Active Substance: FOLIC ACID
     Indication: Prophylaxis of neural tube defect
     Route: 064
  3. MISOPROSTOL [Concomitant]
     Active Substance: MISOPROSTOL
     Indication: Labour induction
     Route: 064
  4. TAXOL [Suspect]
     Active Substance: PACLITAXEL
     Indication: Breast cancer female
     Dosage: 3 CYCLES: WEEK 29, WEEK 32 AND WEEK 35
     Route: 064
     Dates: start: 202005, end: 202007

REACTIONS (3)
  - Strabismus [Unknown]
  - Foetal exposure during pregnancy [Unknown]
  - Congenital myopia [Not Recovered/Not Resolved]

NARRATIVE: CASE EVENT DATE: 20210701
